FAERS Safety Report 6595241-1 (Version None)
Quarter: 2010Q1

REPORT INFORMATION
  Report Type: 
  Country: None (occurrence: None)
  Receive Date: 20100212
  Receipt Date: 20100127
  Transmission Date: 20100710
  Serious: Yes (Other)
  Sender: FDA-Public Use
  Company Number: 20107987

PATIENT
  Sex: Male

DRUGS (1)
  1. LIORESAL [Suspect]
     Indication: MUSCLE SPASTICITY
     Dosage: MCG, DAILY, INTRATHECAL
     Route: 037

REACTIONS (9)
  - DEVICE RELATED INFECTION [None]
  - DRUG WITHDRAWAL SYNDROME [None]
  - FALL [None]
  - HYPERTONIA [None]
  - IMPLANT SITE EROSION [None]
  - OEDEMA [None]
  - PRURITUS [None]
  - SKELETAL INJURY [None]
  - WOUND INFECTION STAPHYLOCOCCAL [None]
